FAERS Safety Report 13121788 (Version 1)
Quarter: 2017Q1

REPORT INFORMATION
  Report Type: Spontaneous
  Country: US (occurrence: US)
  Receive Date: 20170116
  Receipt Date: 20170116
  Transmission Date: 20170428
  Serious: Yes (Other)
  Sender: FDA-Public Use
  Company Number: None

PATIENT
  Age: 77 Year
  Sex: Female

DRUGS (6)
  1. LOSARTAN. [Concomitant]
     Active Substance: LOSARTAN
  2. MODAFINIL. [Concomitant]
     Active Substance: MODAFINIL
  3. AMPYRA [Suspect]
     Active Substance: DALFAMPRIDINE
     Indication: MULTIPLE SCLEROSIS
     Route: 048
     Dates: start: 20161220
  4. ASPIRIN. [Concomitant]
     Active Substance: ASPIRIN
  5. TROSPIUM [Concomitant]
     Active Substance: TROSPIUM
  6. AMLODIPINE [Concomitant]
     Active Substance: AMLODIPINE BESYLATE

REACTIONS (3)
  - Blood sodium decreased [None]
  - Laboratory test abnormal [None]
  - Blood chloride decreased [None]

NARRATIVE: CASE EVENT DATE: 20170105
